FAERS Safety Report 6827805-1 (Version None)
Quarter: 2010Q3

REPORT INFORMATION
  Report Type: 
  Country: None (occurrence: None)
  Receive Date: 20100709
  Receipt Date: 20070126
  Transmission Date: 20110219
  Serious: No
  Sender: FDA-Public Use
  Company Number: US-PFIZER INC-2007008427

PATIENT
  Sex: Female
  Weight: 65.77 kg

DRUGS (7)
  1. CHANTIX [Suspect]
     Indication: SMOKING CESSATION THERAPY
     Dates: start: 20070119
  2. NIASPAN [Concomitant]
  3. ACETYLSALICYLIC ACID [Concomitant]
  4. ALTACE [Concomitant]
  5. PLAVIX [Concomitant]
  6. VYTORIN [Concomitant]
  7. PHENOBARBITAL [Concomitant]

REACTIONS (3)
  - HYPERSOMNIA [None]
  - NAUSEA [None]
  - SOMNOLENCE [None]
